FAERS Safety Report 7429386-0 (Version None)
Quarter: 2011Q2

REPORT INFORMATION
  Report Type: 
  Country: None (occurrence: None)
  Receive Date: 20110421
  Receipt Date: 20110419
  Transmission Date: 20111010
  Serious: Yes (Other)
  Sender: FDA-Public Use
  Company Number: DE-PFIZER INC-2011085002

PATIENT
  Age: 53 Year
  Sex: Male

DRUGS (1)
  1. XALATAN [Suspect]

REACTIONS (1)
  - INTRAOCULAR PRESSURE INCREASED [None]
